FAERS Safety Report 13759327 (Version 4)
Quarter: 2017Q4

REPORT INFORMATION
  Report Type: Spontaneous
  Country: FR (occurrence: FR)
  Receive Date: 20170717
  Receipt Date: 20171130
  Transmission Date: 20180320
  Serious: Yes (Life-Threatening, Hospitalization)
  Sender: FDA-Public Use
  Company Number: FR-CONCORDIA PHARMACEUTICALS INC.-GSH201707-004155

PATIENT
  Age: 73 Year
  Sex: Female

DRUGS (9)
  1. PROZAC [Concomitant]
     Active Substance: FLUOXETINE HYDROCHLORIDE
     Dates: start: 20031211
  2. PLAVIX [Concomitant]
     Active Substance: CLOPIDOGREL BISULFATE
     Dates: start: 20160105
  3. AERIUS [Concomitant]
     Active Substance: DESLORATADINE
  4. LEVOTHYROX [Concomitant]
     Active Substance: LEVOTHYROXINE
  5. PLAQUENIL [Suspect]
     Active Substance: HYDROXYCHLOROQUINE SULFATE
     Indication: SKIN PLAQUE
     Dosage: ONE IN THE MORNING AND ONE IN EVENING
     Route: 048
     Dates: start: 20170224, end: 20170308
  6. EVISTA [Concomitant]
     Active Substance: RALOXIFENE HYDROCHLORIDE
     Dates: start: 20031021
  7. UVEDOSE [Concomitant]
     Active Substance: CHOLECALCIFEROL
  8. EFFERALGAN [Concomitant]
     Active Substance: ACETAMINOPHEN
  9. ALDACTONE [Concomitant]
     Active Substance: SPIRONOLACTONE
     Dates: start: 20031021

REACTIONS (6)
  - Blister [Unknown]
  - Pain [Unknown]
  - Drug reaction with eosinophilia and systemic symptoms [Recovered/Resolved with Sequelae]
  - Burning sensation [Unknown]
  - Toxic skin eruption [Recovered/Resolved]
  - Skin exfoliation [Unknown]

NARRATIVE: CASE EVENT DATE: 201703
